FAERS Safety Report 4658738-7 (Version None)
Quarter: 2005Q2

REPORT INFORMATION
  Report Type: 
  Country: None (occurrence: None)
  Receive Date: 20050509
  Receipt Date: 20050503
  Transmission Date: 20051028
  Serious: Yes (Death)
  Sender: FDA-Public Use
  Company Number: AWBNIASPAND2004-73

PATIENT
  Age: 72 Year
  Sex: Male

DRUGS (4)
  1. NIASPAN [Suspect]
     Indication: DYSLIPIDAEMIA
     Dosage: 1000 MG QD PO
     Route: 048
     Dates: start: 20040101, end: 20040806
  2. FLUVASTATIN [Concomitant]
  3. TORSEMIDE [Concomitant]
  4. RAMIPRIL [Concomitant]

REACTIONS (4)
  - MULTI-ORGAN FAILURE [None]
  - MYOCARDIAL INFARCTION [None]
  - POLYTRAUMATISM [None]
  - ROAD TRAFFIC ACCIDENT [None]
